FAERS Safety Report 23787518 (Version 5)
Quarter: 2024Q2

REPORT INFORMATION
  Report Type: Spontaneous
  Country: US (occurrence: US)
  Receive Date: 20240426
  Receipt Date: 20240618
  Transmission Date: 20240716
  Serious: No
  Sender: FDA-Public Use
  Company Number: US-PFIZER INC-PV202400047292

PATIENT
  Age: 12 Year
  Sex: Male
  Weight: 44.5 kg

DRUGS (2)
  1. GENOTROPIN [Suspect]
     Active Substance: SOMATROPIN
     Indication: Hypopituitarism
     Dosage: DAILY DOSE 1.0 MG/DAY 6 DAYS/WEEK (DOSE IN INCREMENTS OF 0.2 MG)/INJECT 1.0 MG 6X/WK (WEEK)
     Route: 058
  2. GENOTROPIN [Suspect]
     Active Substance: SOMATROPIN
     Indication: Growth hormone deficiency
     Dosage: 1.2 MG (0.16 MG/KG/WK)
     Dates: start: 20240416

REACTIONS (2)
  - Device mechanical issue [Unknown]
  - Off label use [Unknown]
